FAERS Safety Report 13686630 (Version 1)
Quarter: 2017Q2

REPORT INFORMATION
  Report Type: Spontaneous
  Country: PE (occurrence: PE)
  Receive Date: 20170623
  Receipt Date: 20170623
  Transmission Date: 20170830
  Serious: Yes (Hospitalization, Other)
  Sender: FDA-Public Use
  Company Number: PE-SA-2017SA111786

PATIENT
  Age: 43 Year
  Sex: Male
  Weight: 54 kg

DRUGS (1)
  1. FABRAZYME [Suspect]
     Active Substance: AGALSIDASE BETA
     Indication: FABRY^S DISEASE
     Route: 042
     Dates: start: 20101201

REACTIONS (7)
  - Malaise [Recovering/Resolving]
  - End stage renal disease [Unknown]
  - Dyspnoea [Recovering/Resolving]
  - Angina unstable [Unknown]
  - Pyrexia [Recovered/Resolved]
  - Aneurysm [Unknown]
  - Pneumonia [Recovering/Resolving]

NARRATIVE: CASE EVENT DATE: 2012
